FAERS Safety Report 9372403 (Version 1)
Quarter: 2013Q2

REPORT INFORMATION
  Report Type: Spontaneous
  Country: AT (occurrence: AT)
  Receive Date: 20130627
  Receipt Date: 20130627
  Transmission Date: 20140414
  Serious: Yes (Hospitalization, Other)
  Sender: FDA-Public Use
  Company Number: AT-ASTRAZENECA-2013SE47514

PATIENT
  Age: 86 Year
  Sex: Female
  Weight: 65 kg

DRUGS (2)
  1. XYLOCAIN [Suspect]
     Indication: ARTHRALGIA
     Route: 065
     Dates: start: 20130516, end: 20130516
  2. LIDOCAIN [Concomitant]

REACTIONS (1)
  - Drug eruption [Recovered/Resolved]
